FAERS Safety Report 5276721-8 (Version None)
Quarter: 2007Q1

REPORT INFORMATION
  Report Type: 
  Country: None (occurrence: None)
  Receive Date: 20070327
  Receipt Date: 20070321
  Transmission Date: 20070707
  Serious: Yes (Death, Life-Threatening, Hospitalization)
  Sender: FDA-Public Use
  Company Number: FR-BAYER-200610746BFR

PATIENT
  Age: 45 Year
  Sex: Male
  Weight: 65 kg

DRUGS (10)
  1. SORAFENIB [Suspect]
     Indication: METASTATIC MALIGNANT MELANOMA
     Dosage: TOTAL DAILY DOSE: 800 MG  UNIT DOSE: 400 MG
     Route: 048
     Dates: start: 20060705, end: 20060712
  2. DACARBAZINE [Suspect]
     Indication: METASTATIC MALIGNANT MELANOMA
     Route: 042
     Dates: start: 20060705, end: 20060705
  3. SOLUPRED [Concomitant]
     Indication: PAIN
     Dosage: UNIT DOSE: 30 MG
     Route: 048
     Dates: start: 20060802, end: 20060802
  4. SKENAN [Concomitant]
     Indication: PAIN
     Dosage: UNIT DOSE: 50 MG
     Route: 048
     Dates: start: 20060731, end: 20060802
  5. ACTISKENAN [Concomitant]
     Indication: PAIN
     Dosage: UNIT DOSE: 10 MG
     Route: 048
     Dates: start: 20060731, end: 20060802
  6. DUPHALAC [Concomitant]
     Indication: CONSTIPATION
     Dosage: UNIT DOSE: 10 G
     Route: 048
     Dates: start: 20060801, end: 20060803
  7. ATARAX [Concomitant]
     Indication: ANXIETY
     Dosage: UNIT DOSE: 100 MG
     Route: 048
     Dates: start: 20060801, end: 20060802
  8. LEXOMIL [Concomitant]
     Indication: ANXIETY
     Dosage: UNIT DOSE: 3 MG
     Route: 048
     Dates: start: 20060803, end: 20060803
  9. MORPHINE [Concomitant]
     Indication: PAIN
     Route: 042
     Dates: start: 20060803, end: 20060803
  10. HYPNOVEL [Concomitant]
     Indication: SEDATION
     Route: 042
     Dates: start: 20060803, end: 20060803

REACTIONS (3)
  - CYTOLYTIC HEPATITIS [None]
  - PELVIC VENOUS THROMBOSIS [None]
  - PULMONARY EMBOLISM [None]
